FAERS Safety Report 5939754-1 (Version None)
Quarter: 2008Q4

REPORT INFORMATION
  Report Type: 
  Country: None (occurrence: None)
  Receive Date: 20081030
  Receipt Date: 20081030
  Transmission Date: 20090506
  Serious: Yes (Hospitalization)
  Sender: FDA-Public Use
  Company Number: None

PATIENT
  Age: 59 Year
  Sex: Male
  Weight: 95.2554 kg

DRUGS (1)
  1. CHANTIX [Suspect]
     Dosage: 0.5 MG TWICE DAILY ORAL
     Route: 048
     Dates: start: 20080929, end: 20080929

REACTIONS (1)
  - CONVULSION [None]
